FAERS Safety Report 4349440-X (Version None)
Quarter: 2004Q2

REPORT INFORMATION
  Report Type: 
  Country: None (occurrence: None)
  Receive Date: 20040426
  Receipt Date: 20040414
  Transmission Date: 20050107
  Serious: Yes (Hospitalization)
  Sender: FDA-Public Use
  Company Number: 2004SE01753

PATIENT
  Age: 50 Year
  Sex: Female

DRUGS (3)
  1. KENZEN [Suspect]
     Indication: HYPERTENSION
     Dosage: 8 MG QD PO
     Route: 048
     Dates: start: 20040308
  2. FLUDROCORTISONE ACETATE [Concomitant]
  3. BRONCHILATOR [Concomitant]

REACTIONS (3)
  - CONVULSION [None]
  - HYPERADRENALISM [None]
  - HYPONATRAEMIA [None]
